FAERS Safety Report 14794086 (Version 1)
Quarter: 2018Q2

REPORT INFORMATION
  Report Type: Spontaneous
  Country: GB (occurrence: GB)
  Receive Date: 20180423
  Receipt Date: 20180423
  Transmission Date: 20180711
  Serious: Yes (Death, Hospitalization, Other)
  Sender: FDA-Public Use
  Company Number: GB-VIIV HEALTHCARE LIMITED-GB2018067264

PATIENT
  Age: 47 Year
  Sex: Female
  Weight: 109 kg

DRUGS (2)
  1. EFAVIRENZ. [Suspect]
     Active Substance: EFAVIRENZ
     Indication: HIV INFECTION
     Dosage: UNK
     Route: 048
     Dates: start: 20161004, end: 20171215
  2. KIVEXA [Suspect]
     Active Substance: ABACAVIR SULFATE\LAMIVUDINE
     Indication: HIV INFECTION
     Dosage: UNKNOWN
     Route: 048
     Dates: start: 20170418, end: 20171215

REACTIONS (4)
  - Death [Fatal]
  - Jaundice [Unknown]
  - Hepatic necrosis [Unknown]
  - Acute hepatic failure [Unknown]
